FAERS Safety Report 23122794 (Version 1)
Quarter: 2023Q4

REPORT INFORMATION
  Report Type: Report from Study
  Country: CA (occurrence: CA)
  Receive Date: 20231030
  Receipt Date: 20231030
  Transmission Date: 20240110
  Serious: Yes (Hospitalization, Other)
  Sender: FDA-Public Use
  Company Number: CA-002147023-NVSC2023CA095797

PATIENT
  Age: 32 Year
  Sex: Male

DRUGS (2)
  1. ELTROMBOPAG OLAMINE [Suspect]
     Active Substance: ELTROMBOPAG OLAMINE
     Indication: Immune thrombocytopenia
     Dosage: 50 MG, QD
     Route: 048
  2. ELTROMBOPAG OLAMINE [Suspect]
     Active Substance: ELTROMBOPAG OLAMINE
     Dosage: 75 MG, QD
     Route: 048
     Dates: start: 20230220

REACTIONS (6)
  - Platelet count decreased [Unknown]
  - Haemorrhage [Recovering/Resolving]
  - Contusion [Not Recovered/Not Resolved]
  - Epistaxis [Unknown]
  - Full blood count decreased [Recovered/Resolved]
  - Product dose omission in error [Unknown]
